FAERS Safety Report 6207880-8 (Version None)
Quarter: 2009Q2

REPORT INFORMATION
  Report Type: 
  Country: None (occurrence: None)
  Receive Date: 20090529
  Receipt Date: 20090514
  Transmission Date: 20091009
  Serious: Yes (Hospitalization, Other)
  Sender: FDA-Public Use
  Company Number: IN-RANBAXY-2009R1-23531

PATIENT

DRUGS (1)
  1. CIPROFLOXACIN INFUSION [Suspect]
     Indication: GASTROENTERITIS
     Dosage: 200 MG, BID
     Route: 042
     Dates: start: 20090327, end: 20090327

REACTIONS (3)
  - RASH [None]
  - RESPIRATORY DISTRESS [None]
  - VULVOVAGINAL PRURITUS [None]
